FAERS Safety Report 9064168 (Version 1)
Quarter: 2013Q1

REPORT INFORMATION
  Report Type: Spontaneous
  Country: US (occurrence: US)
  Receive Date: 20130213
  Receipt Date: 20130213
  Transmission Date: 20140127
  Serious: Yes (Death, Other)
  Sender: FDA-Public Use
  Company Number: CHPA2013US002582

PATIENT
  Sex: Male

DRUGS (8)
  1. DIPHENHYDRAMINE [Suspect]
     Dosage: UNK, UNK
     Route: 048
  2. COCAINE [Suspect]
     Dosage: UNK, UNK
     Route: 048
  3. OXYCODONE [Suspect]
     Dosage: UNK, UNK
     Route: 048
  4. AMPHETAMINE [Suspect]
     Dosage: UNK, UNK
     Route: 048
  5. MUSCLE RELAXANTS (NOS) [Suspect]
     Dosage: UNK, UNK
     Route: 048
  6. BENZODIAZEPINES [Suspect]
     Dosage: UNK, UNK
     Route: 048
  7. MEPROBAMATE [Suspect]
     Dosage: UNK, UNK
     Route: 048
  8. UNSPECIFIED INGREDIENT [Suspect]
     Dosage: UNK, UNK
     Route: 048

REACTIONS (2)
  - Intentional drug misuse [Fatal]
  - Cardio-respiratory arrest [Unknown]
